FAERS Safety Report 12642916 (Version 1)
Quarter: 2016Q3

REPORT INFORMATION
  Report Type: Spontaneous
  Country: US (occurrence: US)
  Receive Date: 20160811
  Receipt Date: 20160811
  Transmission Date: 20161109
  Serious: No
  Sender: FDA-Public Use
  Company Number: US-BRISTOL-MYERS SQUIBB COMPANY-BMS-2016-065532

PATIENT
  Age: 48 Year
  Sex: Male

DRUGS (5)
  1. ABILIFY [Suspect]
     Active Substance: ARIPIPRAZOLE
     Indication: MANIA
     Dosage: 10 MG, QD
     Route: 048
     Dates: end: 201606
  2. EFFEXOR [Concomitant]
     Active Substance: VENLAFAXINE HYDROCHLORIDE
     Indication: DEPRESSION
     Route: 065
  3. WELLBUTRIN [Concomitant]
     Active Substance: BUPROPION HYDROCHLORIDE
     Indication: DEPRESSION
     Route: 065
  4. ABILIFY [Suspect]
     Active Substance: ARIPIPRAZOLE
     Indication: MAJOR DEPRESSION
     Dosage: 5 MG, QD
     Route: 048
     Dates: start: 2010
  5. ABILIFY [Suspect]
     Active Substance: ARIPIPRAZOLE
     Indication: BIPOLAR DISORDER

REACTIONS (1)
  - Adverse event [Not Recovered/Not Resolved]

NARRATIVE: CASE EVENT DATE: 201607
